FAERS Safety Report 7083158-8 (Version None)
Quarter: 2010Q4

REPORT INFORMATION
  Report Type: 
  Country: None (occurrence: None)
  Receive Date: 20101104
  Receipt Date: 20101028
  Transmission Date: 20110411
  Serious: Yes (Death, Other)
  Sender: FDA-Public Use
  Company Number: GB-SANOFI-AVENTIS-2010SA046878

PATIENT
  Age: 91 Year
  Sex: Female

DRUGS (43)
  1. LANTUS [Suspect]
     Route: 058
     Dates: start: 20060303
  2. LANTUS [Interacting]
     Indication: HYPERTENSION
     Route: 058
     Dates: start: 20060303
  3. LANTUS [Interacting]
     Route: 058
     Dates: start: 20060303
  4. LANTUS [Interacting]
     Route: 058
     Dates: end: 20090513
  5. LANTUS [Interacting]
     Route: 058
     Dates: end: 20090513
  6. LANTUS [Interacting]
     Route: 058
     Dates: end: 20090513
  7. LANTUS [Interacting]
     Route: 058
     Dates: start: 20031107
  8. LANTUS [Interacting]
     Route: 058
     Dates: start: 20031107
  9. LANTUS [Interacting]
     Route: 058
     Dates: start: 20031107
  10. LANTUS [Interacting]
     Route: 058
     Dates: start: 20060710, end: 20090513
  11. LANTUS [Interacting]
     Route: 058
     Dates: start: 20060710, end: 20090513
  12. LANTUS [Interacting]
     Route: 058
     Dates: start: 20060710, end: 20090513
  13. LANTUS [Interacting]
     Route: 058
  14. LANTUS [Interacting]
     Route: 058
  15. LANTUS [Interacting]
     Route: 058
  16. LANTUS [Interacting]
     Route: 058
  17. LANTUS [Interacting]
     Route: 058
  18. LANTUS [Interacting]
     Route: 058
  19. DOXYCYCLINE [Interacting]
     Dates: start: 20090422, end: 20100422
  20. DOXYCYCLINE [Interacting]
     Indication: HYPERTENSION
     Dates: start: 20090422, end: 20100422
  21. DOXYCYCLINE [Interacting]
     Indication: INFECTION
     Dates: start: 20090422, end: 20100422
  22. DOXYCYCLINE [Interacting]
     Dates: start: 20090423
  23. DOXYCYCLINE [Interacting]
     Dates: start: 20090423
  24. DOXYCYCLINE [Interacting]
     Dates: start: 20090423
  25. DOXYCYCLINE [Interacting]
     Dates: start: 20031107
  26. DOXYCYCLINE [Interacting]
     Dates: start: 20031107
  27. DOXYCYCLINE [Interacting]
     Dates: start: 20031107
  28. DOXYCYCLINE [Interacting]
  29. DOXYCYCLINE [Interacting]
  30. DOXYCYCLINE [Interacting]
  31. DOXYCYCLINE [Interacting]
  32. DOXYCYCLINE [Interacting]
  33. DOXYCYCLINE [Interacting]
  34. FUROSEMIDE [Concomitant]
     Dates: start: 20040419
  35. FUROSEMIDE [Concomitant]
     Indication: HYPERTENSION
     Dates: start: 20040419
  36. DIGOXIN [Concomitant]
     Indication: ANXIETY
     Route: 048
     Dates: start: 20031107
  37. DIGOXIN [Concomitant]
     Indication: DEPRESSION
     Route: 048
     Dates: start: 20031107
  38. SPIRONOLACTONE [Concomitant]
     Route: 048
     Dates: start: 20031107
  39. SPIRONOLACTONE [Concomitant]
     Indication: HYPERTENSION
     Route: 048
     Dates: start: 20031107
  40. ASPIRIN [Concomitant]
     Route: 048
     Dates: start: 20040419
  41. ASPIRIN [Concomitant]
     Indication: HYPERTENSION
     Route: 048
     Dates: start: 20040419
  42. PAROXETINE HCL [Concomitant]
     Indication: ANXIETY
     Route: 048
     Dates: start: 20031107
  43. PAROXETINE HCL [Concomitant]
     Indication: DEPRESSION
     Route: 048
     Dates: start: 20031107

REACTIONS (6)
  - APHASIA [None]
  - ASTHENIA [None]
  - DRUG INTERACTION [None]
  - HYPERGLYCAEMIA [None]
  - HYPOGLYCAEMIA [None]
  - MOBILITY DECREASED [None]
